FAERS Safety Report 24237267 (Version 5)
Quarter: 2024Q4

REPORT INFORMATION
  Report Type: Report from Study
  Country: CA (occurrence: CA)
  Receive Date: 20240822
  Receipt Date: 20241122
  Transmission Date: 20250115
  Serious: Yes (Hospitalization, Other)
  Sender: NOVARTIS
  Company Number: CA-002147023-NVSC2024CA165804

PATIENT
  Age: 77 Year
  Sex: Female
  Weight: 69 kg

DRUGS (8)
  1. LEQVIO [Suspect]
     Active Substance: INCLISIRAN SODIUM
     Indication: Arteriosclerosis
     Dosage: 284 MG, OTHER, BASELINE, 3 MONTHS, EVERY 6 MONTHS THEREAFTER
     Route: 058
     Dates: start: 20240722
  2. SEMAGLUTIDE [Concomitant]
     Active Substance: SEMAGLUTIDE
     Indication: Product used for unknown indication
     Dosage: 5ML/MG, QW, MITTE: 100DAYS, REPEATS:0
     Route: 065
     Dates: start: 20240916
  3. COLCHICINE [Concomitant]
     Active Substance: COLCHICINE
     Indication: Coronary artery disease
     Dosage: 1 DOSAGE FORM, QD, MITTE:100DAYS, REPEATS 6
     Route: 048
     Dates: start: 20240916
  4. ASPIRIN [Concomitant]
     Active Substance: ASPIRIN
     Indication: Product used for unknown indication
     Dosage: 1 DOSAGE FORM, QD, QUANTITY:100DAYS, REPEATS: 6
     Route: 048
     Dates: start: 20230406
  5. NITROGLYCERIN [Concomitant]
     Active Substance: NITROGLYCERIN
     Indication: Angina pectoris
     Dosage: METERED DOSE AEROSOL, 1, SL, PRN, QUANTITY: 100MG, REPEATS:6
     Route: 065
     Dates: start: 20230406
  6. ROSUVASTATIN [Concomitant]
     Active Substance: ROSUVASTATIN
     Indication: Product used for unknown indication
     Dosage: 1 DOSAGE FORM (TABLET), QD, QUANTITY:100DAYS, REPEATS: 6
     Route: 048
     Dates: start: 20230406
  7. TELMISARTAN [Concomitant]
     Active Substance: TELMISARTAN
     Indication: Product used for unknown indication
     Dosage: 1 DOSAGE FORM, QHS, QUANTITY:100DAYS, REPEATS:6
     Route: 048
     Dates: start: 20230406
  8. AMLODIPINE [Concomitant]
     Active Substance: AMLODIPINE BESYLATE
     Indication: Product used for unknown indication
     Dosage: 1 DOSAGE FORM, QD, HS, MITTE:100DAYS, REPEATS: 6
     Route: 048
     Dates: start: 20220816

REACTIONS (10)
  - Urinary tract infection [Recovered/Resolved]
  - Acute kidney injury [Recovered/Resolved]
  - Chronic kidney disease [Unknown]
  - Glycosylated haemoglobin increased [Unknown]
  - Tremor [Unknown]
  - Post-traumatic stress disorder [Unknown]
  - Anxiety [Unknown]
  - Depression [Unknown]
  - Grief reaction [Unknown]
  - Memory impairment [Unknown]

NARRATIVE: CASE EVENT DATE: 20240808
